FAERS Safety Report 7562952-0 (Version None)
Quarter: 2011Q2

REPORT INFORMATION
  Report Type: 
  Country: None (occurrence: None)
  Receive Date: 20110615
  Receipt Date: 20110601
  Transmission Date: 20111010
  Serious: Yes (Other)
  Sender: FDA-Public Use
  Company Number: AUR-APL-2011-02620

PATIENT
  Age: 20 Year
  Sex: Male
  Weight: 77.1 kg

DRUGS (2)
  1. VENLAFAXINE HCL [Suspect]
     Indication: EMOTIONAL DISORDER
     Dosage: 150MG-DAILY-ORAL
     Route: 048
     Dates: start: 20110301
  2. VENLAFAXINE HCL [Suspect]
     Indication: DEPRESSION
     Dosage: 150MG-DAILY-ORAL
     Route: 048
     Dates: start: 20110301

REACTIONS (2)
  - HYPERSOMNIA [None]
  - DRUG SCREEN POSITIVE [None]
